FAERS Safety Report 7787803-0 (Version None)
Quarter: 2011Q3

REPORT INFORMATION
  Report Type: 
  Country: None (occurrence: None)
  Receive Date: 20110930
  Receipt Date: 20110920
  Transmission Date: 20111222
  Serious: Yes (Hospitalization, Other)
  Sender: FDA-Public Use
  Company Number: NZ-AMGEN-NZLSP2011039477

PATIENT
  Age: 72 Year
  Sex: Female

DRUGS (10)
  1. FOLIC ACID [Concomitant]
     Dosage: 5 MG, UNK, 6 DAYS A WEEK
     Route: 048
  2. OMEPRAZOLE [Concomitant]
     Dosage: 20 MG, 1X/DAY
  3. ENBREL [Suspect]
     Indication: PSORIATIC ARTHROPATHY
     Dosage: 50 MG, WEEKLY
     Route: 058
     Dates: start: 20101101, end: 20110101
  4. METHOTREXATE [Concomitant]
     Indication: PSORIATIC ARTHROPATHY
     Dosage: 15 MG, WEEKLY
     Route: 030
  5. CANDESARTAN CILEXETIL [Concomitant]
     Indication: HYPERTENSION
     Dosage: 32 MG, 1X/DAY
     Route: 048
  6. FOSAMAX PLUS D [Concomitant]
     Dosage: ONE ONCE A WEEK
  7. PREDNISONE [Concomitant]
     Dosage: 3 MG, 1X/DAY
     Route: 048
  8. SULFASALAZINE [Concomitant]
     Indication: PSORIATIC ARTHROPATHY
     Dosage: 1 G, 2X/DAY
     Route: 048
  9. PREDNEFRIN FORTE                   /00330801/ [Concomitant]
     Dosage: 1 DROP, LEFT EYE 1X/DAY
     Route: 047
  10. ENBREL [Suspect]
     Indication: RHEUMATOID ARTHRITIS

REACTIONS (4)
  - MUSCULAR WEAKNESS [None]
  - SEPTIC SHOCK [None]
  - BACK PAIN [None]
  - CAMPYLOBACTER SEPSIS [None]
